FAERS Safety Report 22392932 (Version 1)
Quarter: 2023Q2

REPORT INFORMATION
  Report Type: Spontaneous
  Country: US (occurrence: None)
  Receive Date: 20230531
  Receipt Date: 20230531
  Transmission Date: 20230721
  Serious: Yes (Hospitalization, Other)
  Sender: FDA-Public Use
  Company Number: None

PATIENT
  Age: 11 Year
  Sex: Male
  Weight: 35.1 kg

DRUGS (2)
  1. CLONIDINE HYDROCHLORIDE [Suspect]
     Active Substance: CLONIDINE HYDROCHLORIDE
     Indication: Insomnia
     Dosage: FREQUENCY : AT BEDTIME;?
     Dates: start: 20230428, end: 20230526
  2. PROZAC [Concomitant]
     Active Substance: FLUOXETINE HYDROCHLORIDE

REACTIONS (7)
  - Nightmare [None]
  - Agitation [None]
  - Abnormal behaviour [None]
  - Hallucination [None]
  - Intentional self-injury [None]
  - Mental disorder [None]
  - Aggression [None]

NARRATIVE: CASE EVENT DATE: 20230526
